FAERS Safety Report 4408111-1 (Version None)
Quarter: 2004Q2

REPORT INFORMATION
  Report Type: 
  Country: None (occurrence: None)
  Receive Date: 20040618
  Receipt Date: 20040506
  Transmission Date: 20050107
  Serious: No
  Sender: FDA-Public Use
  Company Number: US-JNJFOC-20040501622

PATIENT
  Age: 37 Year
  Sex: Female
  Weight: 55.3388 kg

DRUGS (2)
  1. ORTHO EVRA [Suspect]
     Indication: CONTRACEPTION
     Dosage: 1 DOSE(S), 3 IN 4 WEEK, TRANSDERMAL
     Route: 062
  2. ZYTHROMAX (AZITHROMYCIN) [Concomitant]

REACTIONS (3)
  - FUNGAL INFECTION [None]
  - METRORRHAGIA [None]
  - UPPER RESPIRATORY TRACT INFECTION [None]
